FAERS Safety Report 4724462-5 (Version None)
Quarter: 2005Q3

REPORT INFORMATION
  Report Type: 
  Country: None (occurrence: None)
  Receive Date: 20050726
  Receipt Date: 20050609
  Transmission Date: 20060218
  Serious: Yes (Other)
  Sender: FDA-Public Use
  Company Number: 2005UW08996

PATIENT
  Age: 55 Year
  Sex: Male

DRUGS (8)
  1. CRESTOR [Suspect]
     Indication: HYPERCHOLESTEROLAEMIA
     Route: 048
     Dates: start: 20040601, end: 20050324
  2. EZETROL [Concomitant]
     Route: 048
  3. LIPIDIL SUPRA [Concomitant]
     Route: 048
  4. ASPIRIN [Concomitant]
     Route: 048
  5. CENTRUM FORTE [Concomitant]
     Route: 048
  6. MONOCOR [Concomitant]
     Route: 048
  7. NORVASC [Concomitant]
     Route: 048
  8. OMEGA 3 [Concomitant]
     Route: 048

REACTIONS (4)
  - FATIGUE [None]
  - HYPOAESTHESIA [None]
  - MYALGIA [None]
  - MYOPATHY [None]
